FAERS Safety Report 18210398 (Version 2)
Quarter: 2020Q3

REPORT INFORMATION
  Report Type: Report from Study
  Country: None (occurrence: CA)
  Receive Date: 20200829
  Receipt Date: 20200921
  Transmission Date: 20201103
  Serious: Yes (Other)
  Sender: FDA-Public Use
  Company Number: CA-ABBVIE-20K-028-3544464-00

PATIENT
  Age: 69 Year
  Sex: Male

DRUGS (2)
  1. LUPRON DEPOT [Suspect]
     Active Substance: LEUPROLIDE ACETATE
     Route: 030
     Dates: end: 20200108
  2. LUPRON DEPOT [Suspect]
     Active Substance: LEUPROLIDE ACETATE
     Indication: PROSTATE CANCER
     Route: 030
     Dates: start: 201909, end: 201912

REACTIONS (2)
  - Gastrectomy [Recovered/Resolved with Sequelae]
  - Oesophageal adenocarcinoma [Recovering/Resolving]

NARRATIVE: CASE EVENT DATE: 202002
